FAERS Safety Report 13602363 (Version 2)
Quarter: 2018Q4

REPORT INFORMATION
  Report Type: Spontaneous
  Country: US (occurrence: US)
  Receive Date: 20170601
  Receipt Date: 20181204
  Transmission Date: 20190204
  Serious: No
  Sender: FDA-Public Use
  Company Number: US-009507513-1705USA007893

PATIENT
  Age: 10 Day
  Sex: Male

DRUGS (5)
  1. CAPTOPRIL. [Concomitant]
     Active Substance: CAPTOPRIL
     Indication: RENOVASCULAR HYPERTENSION
     Dosage: 0.1 MILLIGRAM/KILOGRAM, Q8H
  2. HYDRALAZINE [Concomitant]
     Active Substance: HYDRALAZINE HYDROCHLORIDE
     Dosage: 0.5 MILLIGRAM/KILOGRAM, Q4H UPTO 24H AFTER STARTING CAPTOPRIL
  3. FUROSEMIDE. [Suspect]
     Active Substance: FUROSEMIDE
     Indication: OEDEMA
     Dosage: 2 MILLIGRAM/KILOGRAM, BID
     Route: 048
  4. ENALAPRIL MALEATE. [Concomitant]
     Active Substance: ENALAPRIL MALEATE
     Indication: RENOVASCULAR HYPERTENSION
     Dosage: 0.1 MILLIGRAM/KILOGRAM, A DAY IN TWO DIVIDED DOSES)
     Route: 048
  5. HYDRALAZINE [Concomitant]
     Active Substance: HYDRALAZINE HYDROCHLORIDE
     Indication: BLOOD PRESSURE SYSTOLIC ABNORMAL
     Dosage: 0.5 MILLIGRAM/KILOGRAM, Q4-6H

REACTIONS (5)
  - Urine flow decreased [Recovered/Resolved]
  - Fluid retention [Recovered/Resolved]
  - Drug effect incomplete [Unknown]
  - Product use issue [Unknown]
  - Weight increased [Recovered/Resolved]
